FAERS Safety Report 5080942-7 (Version None)
Quarter: 2006Q3

REPORT INFORMATION
  Report Type: 
  Country: None (occurrence: None)
  Receive Date: 20060811
  Receipt Date: 20060728
  Transmission Date: 20061208
  Serious: Yes (Death, Hospitalization)
  Sender: FDA-Public Use
  Company Number: 2250

PATIENT
  Age: 50 Year
  Sex: Male
  Weight: 87.0906 kg

DRUGS (4)
  1. TARGRETIN [Suspect]
     Indication: BLADDER CANCER
     Dosage: 836 MG DAILY PO
     Route: 048
     Dates: start: 20060703, end: 20060723
  2. D6A208 [Suspect]
     Indication: BLADDER CANCER
     Dosage: 35 MG/M^2 IV
     Route: 042
     Dates: start: 20060703, end: 20060717
  3. ATORVASTATIN CALCIUM [Concomitant]
  4. LEVOTHYROXINE SODIUM [Concomitant]

REACTIONS (5)
  - CHEST PAIN [None]
  - DYSPNOEA [None]
  - HYPOTENSION [None]
  - HYPOXIA [None]
  - PULMONARY HYPERTENSION [None]
